FAERS Safety Report 19427242 (Version 1)
Quarter: 2021Q2

REPORT INFORMATION
  Report Type: Other
  Country: GB (occurrence: GB)
  Receive Date: 20210617
  Receipt Date: 20210617
  Transmission Date: 20210717
  Serious: Yes (Other)
  Sender: FDA-Public Use
  Company Number: GB-AJANTA PHARMA USA INC.-2112818

PATIENT
  Age: 40 Year
  Sex: Male

DRUGS (4)
  1. CLARITHROMYCIN (ANDA 206714) [Suspect]
     Active Substance: CLARITHROMYCIN
     Indication: PNEUMONIA
     Route: 048
  2. METHADONE [Suspect]
     Active Substance: METHADONE HYDROCHLORIDE
  3. AROVI [Concomitant]
     Route: 058
  4. AMOXICILLIN. [Concomitant]
     Active Substance: AMOXICILLIN
     Route: 048

REACTIONS (4)
  - Toxicity to various agents [Recovered/Resolved]
  - Drug interaction [Recovered/Resolved]
  - Electrocardiogram QT prolonged [Recovered/Resolved]
  - Respiratory failure [Recovered/Resolved]
